FAERS Safety Report 5085963-6 (Version None)
Quarter: 2006Q3

REPORT INFORMATION
  Report Type: 
  Country: None (occurrence: None)
  Receive Date: 20060817
  Receipt Date: 20060807
  Transmission Date: 20061208
  Serious: Yes (Other)
  Sender: FDA-Public Use
  Company Number: 2006096810

PATIENT
  Age: 47 Year
  Sex: Female

DRUGS (3)
  1. SULFASALAZINE [Suspect]
     Indication: RHEUMATOID ARTHRITIS
     Dosage: 2 GRAM (1 GRAM, 2 IN 1 D), ORAL
     Route: 048
     Dates: start: 20060515
  2. ATENOLOL [Concomitant]
  3. BENDROFLUAZIDE (BENDROFLUMETHAZIDE) [Concomitant]

REACTIONS (1)
  - PARTIAL SEIZURES [None]
